FAERS Safety Report 4541985-2 (Version None)
Quarter: 2004Q4

REPORT INFORMATION
  Report Type: 
  Country: None (occurrence: None)
  Receive Date: 20041227
  Receipt Date: 20041216
  Transmission Date: 20050328
  Serious: Yes (Hospitalization)
  Sender: FDA-Public Use
  Company Number: 2004UW25647

PATIENT
  Age: 53 Year
  Sex: Female

DRUGS (7)
  1. SEROQUEL [Suspect]
     Dosage: 500 MG PO
     Route: 048
     Dates: end: 20040101
  2. CLONAPIN [Suspect]
     Dosage: 300 MG
     Dates: end: 20040101
  3. EFFEXOR [Concomitant]
  4. NEURONTIN [Concomitant]
  5. VIOXX [Concomitant]
  6. MOBIC [Concomitant]
  7. AMBIEN [Concomitant]

REACTIONS (1)
  - HEPATIC ENZYME INCREASED [None]
